FAERS Safety Report 7861705-3 (Version None)
Quarter: 2011Q4

REPORT INFORMATION
  Report Type: 
  Country: None (occurrence: None)
  Receive Date: 20111027
  Receipt Date: 20111025
  Transmission Date: 20120403
  Serious: Yes (Death)
  Sender: FDA-Public Use
  Company Number: GB-MERCK-1110GBR00041

PATIENT
  Age: 90 Year

DRUGS (1)
  1. SINEMET CR [Suspect]
     Route: 048

REACTIONS (3)
  - DEATH [None]
  - OFF LABEL USE [None]
  - ACCIDENTAL EXPOSURE [None]
